FAERS Safety Report 5164092-7 (Version None)
Quarter: 2006Q4

REPORT INFORMATION
  Report Type: 
  Country: None (occurrence: None)
  Receive Date: 20061204
  Receipt Date: 20061122
  Transmission Date: 20070319
  Serious: Yes (Other)
  Sender: FDA-Public Use
  Company Number: US-JNJFOC-20060904811

PATIENT
  Sex: Female
  Weight: 82.1 kg

DRUGS (7)
  1. REMICADE [Suspect]
     Route: 042
  2. REMICADE [Suspect]
     Route: 042
  3. REMICADE [Suspect]
     Route: 042
  4. REMICADE [Suspect]
     Indication: ANKYLOSING SPONDYLITIS
     Route: 042
  5. ATENOLOL [Concomitant]
     Indication: HYPERTENSION
  6. OXAPROZIN [Concomitant]
     Indication: ANKYLOSING SPONDYLITIS
  7. DAYPRO [Concomitant]

REACTIONS (1)
  - BREAST CANCER [None]
